FAERS Safety Report 5788298-9 (Version None)
Quarter: 2008Q2

REPORT INFORMATION
  Report Type: 
  Country: None (occurrence: None)
  Receive Date: 20080625
  Receipt Date: 20080611
  Transmission Date: 20081010
  Serious: Yes (Death, Other)
  Sender: FDA-Public Use
  Company Number: JP-MERCK-0805USA03543

PATIENT
  Age: 83 Year
  Sex: Male
  Weight: 41 kg

DRUGS (12)
  1. PRIMAXIN [Suspect]
     Indication: INFECTION
     Route: 065
     Dates: start: 20080512, end: 20080513
  2. HABEKACIN [Concomitant]
     Indication: INFECTION
     Route: 042
     Dates: start: 20080512, end: 20080513
  3. VOLTAREN [Suspect]
     Indication: PYREXIA
     Route: 054
     Dates: start: 20080512, end: 20080512
  4. BISOLVON [Concomitant]
     Indication: SPUTUM RETENTION
     Route: 042
     Dates: start: 20080501, end: 20080515
  5. CEFOPERAZONE SODIUM AND SULBACTAM SODIUM [Concomitant]
     Indication: INFECTION
     Route: 042
     Dates: start: 20080511, end: 20080512
  6. PRIMPERAN TAB [Concomitant]
     Indication: NAUSEA
     Route: 042
     Dates: start: 20080510, end: 20080511
  7. NEOPHAGEN INJECTION [Concomitant]
     Indication: LIVER DISORDER
     Route: 042
     Dates: start: 20080409, end: 20080515
  8. UNICALIQ [Concomitant]
     Indication: NUTRITIONAL SUPPORT
     Route: 042
     Dates: start: 20080315, end: 20080515
  9. DEXTROSE [Concomitant]
     Indication: NUTRITIONAL SUPPORT
     Route: 042
     Dates: start: 20080315, end: 20080515
  10. HOKUNALIN [Concomitant]
     Indication: BRONCHOSTENOSIS
     Route: 061
     Dates: start: 20080301, end: 20080514
  11. ANHIBA [Concomitant]
     Indication: PYREXIA
     Route: 054
     Dates: start: 20080510, end: 20080512
  12. UNASYN (AMPICILLIN SODIUM (+) SULBACTAM SODIUM) [Concomitant]
     Indication: PNEUMONIA
     Route: 065
     Dates: end: 20080507

REACTIONS (4)
  - CONVULSION [None]
  - DEPRESSED LEVEL OF CONSCIOUSNESS [None]
  - MULTI-ORGAN FAILURE [None]
  - SEPSIS [None]
